FAERS Safety Report 5659118-8 (Version None)
Quarter: 2008Q1

REPORT INFORMATION
  Report Type: 
  Country: None (occurrence: None)
  Receive Date: 20080311
  Receipt Date: 20080306
  Transmission Date: 20080703
  Serious: Yes (Other)
  Sender: FDA-Public Use
  Company Number: US-SP-2008-00675

PATIENT
  Age: 54 Year
  Sex: Male

DRUGS (1)
  1. THERACYS [Suspect]
     Indication: BLADDER CANCER
     Route: 043
     Dates: start: 20080131

REACTIONS (3)
  - ARTHRALGIA [None]
  - PYREXIA [None]
  - RHEUMATOID ARTHRITIS [None]
